FAERS Safety Report 13563472 (Version 1)
Quarter: 2017Q2

REPORT INFORMATION
  Report Type: Spontaneous
  Country: LT (occurrence: LT)
  Receive Date: 20170519
  Receipt Date: 20170519
  Transmission Date: 20170830
  Serious: Yes (Life-Threatening, Hospitalization)
  Sender: FDA-Public Use
  Company Number: LT-FRESENIUS KABI-FK201704107

PATIENT
  Age: 30 Year
  Sex: Female

DRUGS (1)
  1. VALPROATE [Suspect]
     Active Substance: VALPROIC ACID
     Indication: EPILEPSY
     Route: 065

REACTIONS (4)
  - Hypocalcaemia [Recovered/Resolved]
  - Suicide attempt [Recovered/Resolved]
  - Vitamin D deficiency [Recovered/Resolved]
  - Hypocalcaemic seizure [Recovered/Resolved]
